FAERS Safety Report 9928475 (Version 1)
Quarter: 2014Q1

REPORT INFORMATION
  Report Type: Report from Study
  Country: US (occurrence: US)
  Receive Date: 20140227
  Receipt Date: 20140227
  Transmission Date: 20141002
  Serious: Yes (Hospitalization, Other)
  Sender: FDA-Public Use
  Company Number: US-ASTELLAS-2014US002008

PATIENT
  Sex: Female

DRUGS (2)
  1. ERLOTINIB TABLET [Suspect]
     Indication: OVARIAN CANCER STAGE IV
     Dosage: 150 MG, UID/QD
     Route: 065
     Dates: start: 201311
  2. ERLOTINIB TABLET [Suspect]
     Indication: RENAL CANCER STAGE IV

REACTIONS (6)
  - Off label use [Unknown]
  - Epistaxis [Unknown]
  - Fluid retention [Not Recovered/Not Resolved]
  - Dyspnoea [Unknown]
  - Diarrhoea [Unknown]
  - Rash [Unknown]
